FAERS Safety Report 4853286-3 (Version None)
Quarter: 2005Q4

REPORT INFORMATION
  Report Type: 
  Country: None (occurrence: None)
  Receive Date: 20051214
  Receipt Date: 20051208
  Transmission Date: 20060501
  Serious: Yes (Hospitalization)
  Sender: FDA-Public Use
  Company Number: US-GLAXOSMITHKLINE-A0585127A

PATIENT
  Age: 33 Year
  Sex: Female

DRUGS (2)
  1. ZOFRAN [Suspect]
     Indication: PROPHYLAXIS OF NAUSEA AND VOMITING
     Dosage: 4MG THREE TIMES PER DAY
     Route: 048
     Dates: start: 20050225, end: 20051005
  2. NO CONCURRENT MEDICATION [Concomitant]

REACTIONS (10)
  - AGEUSIA [None]
  - ANOSMIA [None]
  - DRUG EXPOSURE DURING PREGNANCY [None]
  - DRY MOUTH [None]
  - DYSPHAGIA [None]
  - FEAR [None]
  - HYPOAESTHESIA [None]
  - MUCOSAL DRYNESS [None]
  - VERTIGO [None]
  - VISUAL DISTURBANCE [None]
